FAERS Safety Report 13803176 (Version 4)
Quarter: 2017Q4

REPORT INFORMATION
  Report Type: Report from Study
  Country: US (occurrence: US)
  Receive Date: 20170728
  Receipt Date: 20171023
  Transmission Date: 20180320
  Serious: Yes (Other)
  Sender: FDA-Public Use
  Company Number: US-GILEAD-2017-0285126

PATIENT
  Age: 76 Year
  Sex: Female

DRUGS (32)
  1. WARFARIN [Concomitant]
     Active Substance: WARFARIN
  2. QVAR [Concomitant]
     Active Substance: BECLOMETHASONE DIPROPIONATE
  3. AUGMENTIN [Concomitant]
     Active Substance: AMOXICILLIN\CLAVULANATE POTASSIUM
  4. METOLAZONE. [Concomitant]
     Active Substance: METOLAZONE
  5. LYRICA [Concomitant]
     Active Substance: PREGABALIN
  6. BIOTIN [Concomitant]
     Active Substance: BIOTIN
  7. LEVOTHYROXIN [Concomitant]
     Active Substance: LEVOTHYROXINE
  8. COENZYME Q10 [Concomitant]
     Active Substance: UBIDECARENONE
  9. CALCIUM [Concomitant]
     Active Substance: CALCIUM
  10. OMEPRAZOLE. [Concomitant]
     Active Substance: OMEPRAZOLE
  11. OXYGEN. [Concomitant]
     Active Substance: OXYGEN
  12. NYSTATIN. [Concomitant]
     Active Substance: NYSTATIN
  13. FUROSEMIDE. [Concomitant]
     Active Substance: FUROSEMIDE
  14. MAGNESIUM [Concomitant]
     Active Substance: MAGNESIUM
  15. XARELTO [Suspect]
     Active Substance: RIVAROXABAN
     Indication: PRODUCT USED FOR UNKNOWN INDICATION
     Route: 065
  16. LYSINE [Concomitant]
     Active Substance: LYSINE
  17. SPIRONOLACTON [Concomitant]
     Active Substance: SPIRONOLACTONE
  18. AMBRISENTAN [Suspect]
     Active Substance: AMBRISENTAN
     Indication: PULMONARY HYPERTENSION
     Dosage: 10 MG, QD
     Route: 065
     Dates: start: 20140916
  19. AMBRISENTAN [Suspect]
     Active Substance: AMBRISENTAN
     Dosage: 5 MG, UNK
     Route: 065
  20. ADEMPAS [Concomitant]
     Active Substance: RIOCIGUAT
  21. POTASSIUM [Concomitant]
     Active Substance: POTASSIUM
  22. OMEGA 3                            /01334101/ [Concomitant]
     Active Substance: OMEGA-3 FATTY ACIDS
  23. VALTREX [Concomitant]
     Active Substance: VALACYCLOVIR HYDROCHLORIDE
  24. ALBUTEROL                          /00139501/ [Concomitant]
     Active Substance: ALBUTEROL
  25. SELENIUM [Concomitant]
     Active Substance: SELENIUM
  26. MONTELUKAST [Concomitant]
     Active Substance: MONTELUKAST SODIUM
  27. LIOTHYRONINE [Concomitant]
     Active Substance: LIOTHYRONINE
  28. FLONASE                            /00908302/ [Concomitant]
     Active Substance: MOMETASONE FUROATE
  29. GABAPENTIN. [Concomitant]
     Active Substance: GABAPENTIN
  30. PROBIOTIC                          /06395501/ [Concomitant]
     Active Substance: BIFIDOBACTERIUM ANIMALIS LACTIS
  31. VITAMIN K2                         /00564301/ [Concomitant]
  32. VITAMIN D [Concomitant]
     Active Substance: CHOLECALCIFEROL

REACTIONS (6)
  - Epistaxis [Not Recovered/Not Resolved]
  - Hypergammaglobulinaemia benign monoclonal [Unknown]
  - Small intestinal haemorrhage [Not Recovered/Not Resolved]
  - Plasma cell myeloma [Unknown]
  - Haematocrit decreased [Not Recovered/Not Resolved]
  - Hodgkin^s disease [Not Recovered/Not Resolved]

NARRATIVE: CASE EVENT DATE: 201601
